FAERS Safety Report 13398235 (Version 4)
Quarter: 2017Q3

REPORT INFORMATION
  Report Type: Report from Study
  Country: None (occurrence: RO)
  Receive Date: 20170403
  Receipt Date: 20170706
  Transmission Date: 20171127
  Serious: Yes (Hospitalization, Disabling, Other)
  Sender: FDA-Public Use
  Company Number: RO-ABBVIE-17P-135-1862207-00

PATIENT
  Age: 68 Year
  Sex: Female
  Weight: 60 kg

DRUGS (6)
  1. DUODOPA [Suspect]
     Active Substance: CARBIDOPA\LEVODOPA
     Route: 050
     Dates: start: 20161121, end: 20170104
  2. AMIKACINUM [Concomitant]
     Indication: URINARY TRACT INFECTION
     Route: 042
     Dates: start: 20170107, end: 20170113
  3. DULOXETINA [Concomitant]
     Active Substance: DULOXETINE
     Indication: DEPRESSION
     Route: 048
     Dates: start: 20161129
  4. DUODOPA [Suspect]
     Active Substance: CARBIDOPA\LEVODOPA
     Indication: PARKINSON^S DISEASE
     Dosage: AS MONOTHERAPY?MD 8ML, CD 3.9ML,ED 1.9ML,
     Route: 050
     Dates: start: 20161118, end: 20161121
  5. ISICOM [Concomitant]
     Active Substance: CARBIDOPA\LEVODOPA
     Indication: PARKINSON^S DISEASE
     Dosage: 100-200MG
     Route: 048
     Dates: start: 20161231
  6. MIDODRIN [Concomitant]
     Indication: HYPOTENSION
     Route: 048
     Dates: start: 20161231

REACTIONS (2)
  - Gastric ulcer [Not Recovered/Not Resolved]
  - Upper gastrointestinal haemorrhage [Not Recovered/Not Resolved]

NARRATIVE: CASE EVENT DATE: 20170112
